FAERS Safety Report 5385650-0 (Version None)
Quarter: 2007Q3

REPORT INFORMATION
  Report Type: 
  Country: None (occurrence: None)
  Receive Date: 20070712
  Receipt Date: 20070705
  Transmission Date: 20080115
  Serious: Yes (Hospitalization)
  Sender: FDA-Public Use
  Company Number: FR-ASTRAZENECA-2007CG01031

PATIENT
  Age: 29 Year
  Sex: Female

DRUGS (2)
  1. OMEPRAZOLE [Suspect]
     Indication: GASTROOESOPHAGEAL REFLUX DISEASE
     Route: 048
     Dates: end: 20070601
  2. OMEPRAZOLE [Suspect]
     Indication: GASTRITIS
     Route: 048
     Dates: end: 20070601

REACTIONS (1)
  - HEPATIC CIRRHOSIS [None]
